FAERS Safety Report 12839147 (Version 1)
Quarter: 2016Q4

REPORT INFORMATION
  Report Type: Report from Study
  Country: US (occurrence: US)
  Receive Date: 20161012
  Receipt Date: 20161012
  Transmission Date: 20170207
  Serious: Yes (Other)
  Sender: FDA-Public Use
  Company Number: US-AMGEN-USASL2016114515

PATIENT
  Age: 67 Year
  Sex: Female

DRUGS (1)
  1. PROLIA [Suspect]
     Active Substance: DENOSUMAB
     Indication: OSTEOPOROSIS POSTMENOPAUSAL
     Dosage: UNK
     Route: 065
     Dates: start: 201603

REACTIONS (5)
  - Anaphylactic reaction [Unknown]
  - Shock [Unknown]
  - Pneumonia [Unknown]
  - Blood immunoglobulin G decreased [Unknown]
  - Decreased immune responsiveness [Unknown]
